FAERS Safety Report 24412638 (Version 2)
Quarter: 2024Q4

REPORT INFORMATION
  Report Type: Spontaneous
  Country: CN (occurrence: CN)
  Receive Date: 20241008
  Receipt Date: 20241009
  Transmission Date: 20250114
  Serious: Yes (Other)
  Sender: BAYER
  Company Number: CN-BAYER-2024A143046

PATIENT
  Sex: Female

DRUGS (1)
  1. YAZ [Suspect]
     Active Substance: DROSPIRENONE\ETHINYL ESTRADIOL
     Dosage: UNK
     Route: 048
     Dates: start: 202406

REACTIONS (4)
  - Retinal vein occlusion [None]
  - Blindness unilateral [None]
  - Retinal degeneration [None]
  - Visual acuity reduced [None]

NARRATIVE: CASE EVENT DATE: 20240101
